FAERS Safety Report 12982348 (Version 1)
Quarter: 2016Q4

REPORT INFORMATION
  Report Type: Spontaneous
  Country: US (occurrence: US)
  Receive Date: 20161128
  Receipt Date: 20161128
  Transmission Date: 20170207
  Serious: No
  Sender: FDA-Public Use
  Company Number: None

PATIENT
  Sex: Female

DRUGS (2)
  1. STIVARGA [Suspect]
     Active Substance: REGORAFENIB
     Indication: MALIGNANT CONNECTIVE TISSUE NEOPLASM
     Dosage: 160MG ONCE A DAY FOR 3 WEEKS ON THEN, PO
     Route: 048
     Dates: start: 20161108
  2. STIVARGA [Suspect]
     Active Substance: REGORAFENIB
     Indication: SOFT TISSUE SARCOMA
     Dosage: 160MG ONCE A DAY FOR 3 WEEKS ON THEN, PO
     Route: 048
     Dates: start: 20161108

REACTIONS (2)
  - Feeling hot [None]
  - Blood pressure increased [None]
